FAERS Safety Report 7207903-3 (Version None)
Quarter: 2010Q4

REPORT INFORMATION
  Report Type: 
  Country: None (occurrence: None)
  Receive Date: 20101221
  Receipt Date: 20101202
  Transmission Date: 20110411
  Serious: Yes (Hospitalization, Other)
  Sender: FDA-Public Use
  Company Number: JPI-P-012802

PATIENT
  Age: 58 Year
  Sex: Female
  Weight: 68.0396 kg

DRUGS (4)
  1. XYREM [Suspect]
     Indication: FIBROMYALGIA
     Dosage: (6 GM (3 GM, 2 IN 1 D), ORAL) (TITRATING DOSE, ORAL) (12 GM (4 GM, 3 IN 1 D), ORAL)
     Route: 048
     Dates: start: 20030213
  2. XYREM [Suspect]
     Indication: INSOMNIA
     Dosage: (6 GM (3 GM, 2 IN 1 D), ORAL) (TITRATING DOSE, ORAL) (12 GM (4 GM, 3 IN 1 D), ORAL)
     Route: 048
     Dates: start: 20030213
  3. XYREM [Suspect]
     Indication: FIBROMYALGIA
     Dosage: (6 GM (3 GM, 2 IN 1 D), ORAL) (TITRATING DOSE, ORAL) (12 GM (4 GM, 3 IN 1 D), ORAL)
     Route: 048
     Dates: start: 20050713
  4. XYREM [Suspect]
     Indication: INSOMNIA
     Dosage: (6 GM (3 GM, 2 IN 1 D), ORAL) (TITRATING DOSE, ORAL) (12 GM (4 GM, 3 IN 1 D), ORAL)
     Route: 048
     Dates: start: 20050713

REACTIONS (8)
  - ABSCESS [None]
  - GALLBLADDER DISORDER [None]
  - GASTROINTESTINAL DISORDER [None]
  - HERNIA [None]
  - MALAISE [None]
  - PERFORATED ULCER [None]
  - THROMBOSIS [None]
  - WEIGHT INCREASED [None]
